FAERS Safety Report 15996169 (Version 1)
Quarter: 2019Q1

REPORT INFORMATION
  Report Type: Spontaneous
  Country: US (occurrence: US)
  Receive Date: 20190222
  Receipt Date: 20190222
  Transmission Date: 20190418
  Serious: No
  Sender: FDA-Public Use
  Company Number: None

PATIENT
  Age: 51 Year
  Sex: Female
  Weight: 81 kg

DRUGS (5)
  1. TRETINOIN. [Suspect]
     Active Substance: TRETINOIN
     Indication: ACNE
     Route: 061
     Dates: start: 20181120, end: 20190218
  2. VITAMIN D [Concomitant]
     Active Substance: CHOLECALCIFEROL
  3. NSAID [Concomitant]
     Active Substance: UNSPECIFIED INGREDIENT
  4. CHLORPHENIRAMINE. [Concomitant]
     Active Substance: CHLORPHENIRAMINE
  5. LORATIDINE [Concomitant]
     Active Substance: LORATADINE

REACTIONS (4)
  - Diarrhoea [None]
  - Incontinence [None]
  - Cough [None]
  - Sneezing [None]

NARRATIVE: CASE EVENT DATE: 20181120
